FAERS Safety Report 7067391-7 (Version None)
Quarter: 2010Q4

REPORT INFORMATION
  Report Type: 
  Country: None (occurrence: None)
  Receive Date: 20101026
  Receipt Date: 20101026
  Transmission Date: 20110411
  Serious: Yes (Life-Threatening, Hospitalization)
  Sender: FDA-Public Use
  Company Number: None

PATIENT
  Sex: Female
  Weight: 83.9154 kg

DRUGS (3)
  1. SEROQUEL [Suspect]
     Dosage: 200 MG NIGHT TIME
     Dates: start: 19840101, end: 20100101
  2. THIOTHIXENE [Suspect]
     Dosage: 10 MG BED TIME
  3. DIVALPROEX SODIUM [Suspect]
     Dosage: 500 MG 2 X DAY

REACTIONS (6)
  - ABNORMAL FAECES [None]
  - DYSPNOEA [None]
  - HEART VALVE INCOMPETENCE [None]
  - SLUGGISHNESS [None]
  - TOOTH LOSS [None]
  - VISUAL IMPAIRMENT [None]
